FAERS Safety Report 7610472-7 (Version None)
Quarter: 2011Q3

REPORT INFORMATION
  Report Type: 
  Country: None (occurrence: None)
  Receive Date: 20110715
  Receipt Date: 20090930
  Transmission Date: 20111222
  Serious: Yes (Death, Other)
  Sender: FDA-Public Use
  Company Number: US-BAYER-200934473NA

PATIENT
  Age: 70 Year
  Sex: Female
  Weight: 86.576 kg

DRUGS (11)
  1. VANCOMYCIN [Concomitant]
     Dosage: 1 G
     Route: 042
     Dates: start: 20041217, end: 20041217
  2. TRASYLOL [Suspect]
     Indication: PRODUCT USED FOR UNKNOWN INDICATION
     Dosage: 200 ML, LOADING DOSE
     Route: 042
     Dates: start: 20041217, end: 20041217
  3. FUROSEMIDE [Concomitant]
     Dosage: VARIES
     Route: 042
     Dates: start: 20041208
  4. FENTANYL [Concomitant]
     Dosage: 16.3 ML
     Route: 042
     Dates: start: 20041217, end: 20041217
  5. VERSED [Concomitant]
     Dosage: 15 MG, UNK
     Route: 042
     Dates: start: 20041217, end: 20041217
  6. HEPARIN [Concomitant]
     Dosage: VARIES
     Route: 042
     Dates: start: 20041217, end: 20041217
  7. TRASYLOL [Suspect]
     Indication: CORONARY ARTERY BYPASS
     Dosage: 50 ML/HOUR, INFUSION
     Route: 042
     Dates: start: 20041217, end: 20041217
  8. PROTAMINE SULFATE [Concomitant]
     Dosage: 265 MG
     Route: 042
     Dates: start: 20041217, end: 20041217
  9. TRASYLOL [Suspect]
     Indication: ENDARTERECTOMY OF AORTA
     Dosage: 1 ML, TEST DOSE
     Route: 042
     Dates: start: 20041217, end: 20041217
  10. PLAVIX [Concomitant]
     Dosage: 75 MG, UNK
     Route: 048
     Dates: start: 20041209, end: 20041212
  11. FRESH FROZEN PLASMA [Concomitant]
     Dosage: 3 U, ONCE
     Route: 042

REACTIONS (12)
  - INJURY [None]
  - RENAL FAILURE [None]
  - EMOTIONAL DISTRESS [None]
  - STRESS [None]
  - RENAL INJURY [None]
  - MULTI-ORGAN FAILURE [None]
  - UNEVALUABLE EVENT [None]
  - ANXIETY [None]
  - FEAR [None]
  - RENAL IMPAIRMENT [None]
  - DEATH [None]
  - PAIN [None]
